FAERS Safety Report 7661444 (Version 5)
Quarter: 2012Q4

REPORT INFORMATION
  Report Type: 
  Country: US (occurrence: US)
  Receive Date: 20101109
  Receipt Date: 20121016
  Transmission Date: 20130627
  Serious: Yes (Hospitalization, Disabling, Other)
  Sender: FDA-Public Use
  Company Number: US-BAYER-201031057NA

PATIENT
  Age: 22 Year
  Sex: Female
  Weight: 97.51 kg

DRUGS (17)
  1. YASMIN [Suspect]
     Indication: PREMENSTRUAL SYNDROME
     Dosage: UNK
     Route: 048
     Dates: start: 200308, end: 200507
  2. YASMIN [Suspect]
     Indication: PREMENSTRUAL SYNDROME
  3. YASMIN [Suspect]
     Indication: ACNE
  4. YASMIN [Suspect]
     Indication: POLYCYSTIC OVARIES
  5. YASMIN [Suspect]
     Indication: MENSTRUATION IRREGULAR
  6. COUMADIN [Concomitant]
  7. LANSOPRAZOLE [Concomitant]
  8. ALBUTEROL SULFATE [Concomitant]
  9. MONTELUKAST [Concomitant]
  10. FEXOFENADINE [Concomitant]
  11. VERAPAMIL [Concomitant]
  12. METFORMIN [Concomitant]
  13. FLUCONAZOLE [Concomitant]
  14. FORMOTEROL [Concomitant]
  15. METAXALONE [Concomitant]
  16. SINGULAIR [Concomitant]
  17. ALLEGRA [Concomitant]

REACTIONS (33)
  - Pulmonary embolism [None]
  - High risk pregnancy [None]
  - Depression [None]
  - Activities of daily living impaired [None]
  - Post-traumatic stress disorder [None]
  - Weight increased [None]
  - Anxiety disorder [None]
  - Injury [None]
  - Pain [None]
  - Mental disorder [None]
  - Tachycardia [None]
  - Anxiety [None]
  - Emotional distress [None]
  - Fear [None]
  - Quality of life decreased [None]
  - Cough [None]
  - Chest pain [None]
  - Palpitations [None]
  - Haemoptysis [None]
  - Dyspnoea [None]
  - Frustration [None]
  - Exercise tolerance decreased [None]
  - Gait disturbance [None]
  - Fatigue [None]
  - Vomiting [None]
  - Cardiac discomfort [None]
  - Stress [None]
  - Syncope [None]
  - Skin striae [None]
  - Malaise [None]
  - Depressed mood [None]
  - Emotional disorder [None]
  - Asthenia [None]
